FAERS Safety Report 5509745-3 (Version None)
Quarter: 2007Q4

REPORT INFORMATION
  Report Type: 
  Country: None (occurrence: None)
  Receive Date: 20071107
  Receipt Date: 20071107
  Transmission Date: 20080405
  Serious: Yes (Hospitalization)
  Sender: FDA-Public Use
  Company Number: None

PATIENT
  Age: 10 Year
  Sex: Female
  Weight: 27.2 kg

DRUGS (1)
  1. FOSPHENYTOIN 150 MG PE/2ML- 100 MG [Suspect]
     Indication: CONVULSION PROPHYLAXIS
     Dosage: 544 MG PE ONCE IV BOLUS 136,108.8, 81.6, 68 MG PE ONCE IV BOLUS
     Route: 040
     Dates: start: 20071024, end: 20071031

REACTIONS (2)
  - HEPATIC ENZYME INCREASED [None]
  - HEPATIC FUNCTION ABNORMAL [None]
